FAERS Safety Report 25341448 (Version 1)
Quarter: 2025Q2

REPORT INFORMATION
  Report Type: Spontaneous
  Country: GB (occurrence: GB)
  Receive Date: 20250521
  Receipt Date: 20250521
  Transmission Date: 20250717
  Serious: Yes (Other)
  Sender: MYLAN
  Company Number: GB-MYLANLABS-2025M1040508

PATIENT
  Sex: Male

DRUGS (4)
  1. CLOZARIL [Suspect]
     Active Substance: CLOZAPINE
     Indication: Schizophrenia
     Dosage: UNK, BID (100MG MORNING + 375MG NIGHT)
     Dates: start: 20140522, end: 20250424
  2. CLOZARIL [Suspect]
     Active Substance: CLOZAPINE
     Dosage: UNK, BID (100MG MORNING + 375MG NIGHT)
     Route: 048
     Dates: start: 20140522, end: 20250424
  3. CLOZARIL [Suspect]
     Active Substance: CLOZAPINE
     Dosage: UNK, BID (100MG MORNING + 375MG NIGHT)
     Route: 048
     Dates: start: 20140522, end: 20250424
  4. CLOZARIL [Suspect]
     Active Substance: CLOZAPINE
     Dosage: UNK, BID (100MG MORNING + 375MG NIGHT)
     Dates: start: 20140522, end: 20250424

REACTIONS (3)
  - Schizophrenia [Unknown]
  - Anaemia [Unknown]
  - Treatment noncompliance [Unknown]
